FAERS Safety Report 23187308 (Version 1)
Quarter: 2023Q4

REPORT INFORMATION
  Report Type: Spontaneous
  Country: CN (occurrence: CN)
  Receive Date: 20231115
  Receipt Date: 20231115
  Transmission Date: 20240109
  Serious: Yes (Hospitalization, Other)
  Sender: FDA-Public Use
  Company Number: CN-BAYER-2023A162543

PATIENT
  Age: 51 Year
  Sex: Female
  Weight: 68.8 kg

DRUGS (4)
  1. STIVARGA [Suspect]
     Active Substance: REGORAFENIB
     Indication: Colon cancer
     Dosage: 80 MG, QD
     Route: 048
     Dates: start: 20230815, end: 20230905
  2. STIVARGA [Suspect]
     Active Substance: REGORAFENIB
     Indication: Hepatic cancer metastatic
  3. TISLELIZUMAB [Suspect]
     Active Substance: TISLELIZUMAB
     Indication: Colon cancer
     Dosage: 200 MG, QD
     Route: 041
     Dates: start: 20230815, end: 20230815
  4. TISLELIZUMAB [Suspect]
     Active Substance: TISLELIZUMAB
     Indication: Hepatic cancer metastatic

REACTIONS (3)
  - Immune-mediated hepatic disorder [Recovering/Resolving]
  - Gastrointestinal haemorrhage [None]
  - Off label use [None]

NARRATIVE: CASE EVENT DATE: 20230101
